FAERS Safety Report 4966032-X (Version None)
Quarter: 2006Q2

REPORT INFORMATION
  Report Type: 
  Country: None (occurrence: None)
  Receive Date: 20060407
  Receipt Date: 20060327
  Transmission Date: 20061013
  Serious: Yes (Other)
  Sender: FDA-Public Use
  Company Number: GB-GLAXOSMITHKLINE-B0418891A

PATIENT
  Sex: Male

DRUGS (1)
  1. TAGAMET [Suspect]
     Route: 065

REACTIONS (2)
  - GYNAECOMASTIA [None]
  - NEOPLASM MALIGNANT [None]
